FAERS Safety Report 10582824 (Version 2)
Quarter: 2014Q4

REPORT INFORMATION
  Report Type: Spontaneous
  Country: DE (occurrence: DE)
  Receive Date: 20141114
  Receipt Date: 20141217
  Transmission Date: 20150529
  Serious: Yes (Death, Hospitalization)
  Sender: FDA-Public Use
  Company Number: DE-ROCHE-1489180

PATIENT
  Age: 50 Year
  Sex: Female
  Weight: 42.5 kg

DRUGS (2)
  1. ZELBORAF [Suspect]
     Active Substance: VEMURAFENIB
     Dosage: 2 X 2 TABLETS PER DAY
     Route: 048
     Dates: start: 20140610, end: 20140617
  2. ZELBORAF [Suspect]
     Active Substance: VEMURAFENIB
     Indication: METASTATIC MALIGNANT MELANOMA
     Dosage: 2 X 4 TABLETS PER DAY
     Route: 048
     Dates: start: 20140521, end: 201406

REACTIONS (2)
  - Toxic epidermal necrolysis [Fatal]
  - Rash [Not Recovered/Not Resolved]

NARRATIVE: CASE EVENT DATE: 20140610
